FAERS Safety Report 7904776-8 (Version None)
Quarter: 2011Q4

REPORT INFORMATION
  Report Type: 
  Country: None (occurrence: None)
  Receive Date: 20111109
  Receipt Date: 20111031
  Transmission Date: 20120403
  Serious: Yes (Hospitalization)
  Sender: FDA-Public Use
  Company Number: US-PURDUE-USA-2011-0073626

PATIENT
  Age: 69 Year
  Sex: Male
  Weight: 89.796 kg

DRUGS (5)
  1. COLACE CAPSULES 100 MG [Suspect]
     Indication: CONSTIPATION
     Dosage: UNK UNK, QD PRN
     Dates: start: 20110424
  2. AXITINIB [Suspect]
     Indication: METASTATIC RENAL CELL CARCINOMA
     Dosage: 3 MG, BID
     Route: 048
     Dates: start: 20110208, end: 20110703
  3. SENOKOT [Suspect]
     Indication: CONSTIPATION
     Dosage: UNK UNK, QD PRN
     Route: 048
     Dates: start: 20110415
  4. AXITINIB [Suspect]
     Dosage: 2 MG, BID
     Dates: start: 20110709
  5. MIRALAX [Suspect]
     Indication: CONSTIPATION
     Dosage: 17 G, DAILY
     Dates: start: 20110429

REACTIONS (3)
  - DEHYDRATION [None]
  - VOMITING [None]
  - DIARRHOEA [None]
